FAERS Safety Report 7691343-7 (Version None)
Quarter: 2011Q3

REPORT INFORMATION
  Report Type: 
  Country: None (occurrence: None)
  Receive Date: 20110817
  Receipt Date: 20110817
  Transmission Date: 20111222
  Serious: Yes (Other)
  Sender: FDA-Public Use
  Company Number: None

PATIENT
  Sex: Male
  Weight: 39 kg

DRUGS (2)
  1. LEVETIRACETAM [Suspect]
     Indication: MICROCEPHALY
     Dosage: 500 M BID PO
     Route: 048
     Dates: start: 20110708
  2. LEVETIRACETAM [Suspect]
     Indication: EPILEPSY
     Dosage: 500 M BID PO
     Route: 048
     Dates: start: 20110708

REACTIONS (2)
  - CONVULSION [None]
  - PRODUCT SUBSTITUTION ISSUE [None]
